FAERS Safety Report 16672085 (Version 1)
Quarter: 2019Q3

REPORT INFORMATION
  Report Type: Spontaneous
  Country: IT (occurrence: IT)
  Receive Date: 20190806
  Receipt Date: 20190806
  Transmission Date: 20191004
  Serious: Yes (Hospitalization, Other)
  Sender: FDA-Public Use
  Company Number: IT-TEVA-2019-IT-1087925

PATIENT
  Sex: Female

DRUGS (1)
  1. METFORMINA TEVA [Suspect]
     Active Substance: METFORMIN HYDROCHLORIDE
     Indication: DIABETES MELLITUS
     Route: 065

REACTIONS (20)
  - Respiratory failure [Recovered/Resolved]
  - Coma [Recovered/Resolved]
  - Chronic kidney disease [Unknown]
  - Anxiety [Not Recovered/Not Resolved]
  - Depression [Unknown]
  - Metabolic acidosis [Recovered/Resolved]
  - Anuria [Recovered/Resolved]
  - Apathy [Unknown]
  - Lactic acidosis [Unknown]
  - Hypertension [Unknown]
  - Renal failure [Recovered/Resolved]
  - Anxiety [Unknown]
  - Insomnia [Unknown]
  - Malaise [Unknown]
  - Premature menopause [Unknown]
  - Depressed mood [Unknown]
  - Panic attack [Unknown]
  - Decreased interest [Unknown]
  - Liver disorder [Unknown]
  - Quality of life decreased [Unknown]

NARRATIVE: CASE EVENT DATE: 2013
